FAERS Safety Report 17658696 (Version 1)
Quarter: 2020Q2

REPORT INFORMATION
  Report Type: Report from Study
  Country: ES (occurrence: ES)
  Receive Date: 20200412
  Receipt Date: 20200412
  Transmission Date: 20200713
  Serious: Yes (Hospitalization)
  Sender: FDA-Public Use
  Company Number: ES-AMGEN-ESPNI2020059072

PATIENT
  Age: 79 Year
  Sex: Female
  Weight: 57 kg

DRUGS (1)
  1. ETANERCEPT [Suspect]
     Active Substance: ETANERCEPT
     Indication: RHEUMATOID ARTHRITIS
     Dosage: 50 MILLIGRAM, UNK
     Route: 058
     Dates: start: 20130326, end: 20140728

REACTIONS (1)
  - Renal oncocytoma [Recovered/Resolved]

NARRATIVE: CASE EVENT DATE: 20140728
